FAERS Safety Report 25528956 (Version 1)
Quarter: 2025Q3

REPORT INFORMATION
  Report Type: Spontaneous
  Country: US (occurrence: US)
  Receive Date: 20250708
  Receipt Date: 20250708
  Transmission Date: 20251021
  Serious: Yes (Life-Threatening, Hospitalization, Other)
  Sender: SANOFI AVENTIS
  Company Number: US-SA-2025SA189894

PATIENT
  Age: 41 Year
  Sex: Female

DRUGS (33)
  1. DUPIXENT [Suspect]
     Active Substance: DUPILUMAB
     Indication: Asthma exercise induced
     Dosage: 200 MG, Q2M
     Dates: start: 20250429, end: 20250430
  2. THYROID [Suspect]
     Active Substance: LEVOTHYROXINE\LIOTHYRONINE
     Indication: Hypothyroidism
     Dosage: 1 DOSAGE FORM 43.84/10.03 (1), EVERY 1 DAYS
     Route: 048
     Dates: start: 20250211
  3. CHOLECALCIFEROL [Concomitant]
     Active Substance: CHOLECALCIFEROL
     Indication: Vitamin D deficiency
     Dosage: 600 IU, QOW
     Dates: start: 20211027
  4. TOPIRAMATE [Concomitant]
     Active Substance: TOPIRAMATE
     Indication: Migraine
     Dates: start: 20211117
  5. TOPIRAMATE [Concomitant]
     Active Substance: TOPIRAMATE
     Indication: Epilepsy
  6. LORATADINE [Concomitant]
     Active Substance: LORATADINE
     Indication: Seasonal allergy
     Dates: start: 2015
  7. FLUTICASONE PROPIONATE [Concomitant]
     Active Substance: FLUTICASONE PROPIONATE
     Indication: Seasonal allergy
     Dates: start: 20240321
  8. ALBUTEROL [Concomitant]
     Active Substance: ALBUTEROL
     Indication: Asthma exercise induced
     Dates: start: 20240321
  9. BUDESONIDE [Concomitant]
     Active Substance: BUDESONIDE
     Indication: Asthma exercise induced
     Dates: start: 20240321, end: 20250624
  10. FORMOTEROL FUMARATE [Concomitant]
     Active Substance: FORMOTEROL FUMARATE
     Indication: Asthma exercise induced
     Dates: start: 20240321, end: 20250624
  11. EZETIMIBE [Concomitant]
     Active Substance: EZETIMIBE
     Indication: Hyperlipidaemia
     Dosage: 10 MG, QD
     Dates: start: 20240328
  12. HYDROXYZINE HYDROCHLORIDE [Concomitant]
     Active Substance: HYDROXYZINE HYDROCHLORIDE
     Indication: Insomnia
     Dates: start: 2005
  13. SYLVIA ODT [Concomitant]
     Indication: Migraine
     Dosage: 75 MG, QD
     Dates: start: 20210927
  14. ONDANSETRON [Concomitant]
     Active Substance: ONDANSETRON
     Indication: Migraine
     Dates: start: 2005
  15. ONDANSETRON [Concomitant]
     Active Substance: ONDANSETRON
     Indication: Nausea
  16. IBUPROFEN [Concomitant]
     Active Substance: IBUPROFEN
     Indication: Antipyresis
     Dates: start: 2000
  17. LACOSAMIDE [Concomitant]
     Active Substance: LACOSAMIDE
     Indication: Epilepsy
     Dates: start: 20220301
  18. SUMATRIPTAN [Concomitant]
     Active Substance: SUMATRIPTAN
     Indication: Migraine
     Dates: start: 20220518
  19. MAGNESIUM [MAGNESIUM CHELATE] [Concomitant]
     Indication: Mineral supplementation
     Dosage: 400 MG, QD
     Dates: start: 2019
  20. AIMOVIG [Concomitant]
     Active Substance: ERENUMAB-AOOE
     Indication: Migraine
     Dosage: 70 MG, QOW
     Dates: start: 20231115
  21. FAMOTIDINE [Concomitant]
     Active Substance: FAMOTIDINE
     Indication: Gastrooesophageal reflux disease
     Dates: start: 2003
  22. GLUCAGON [Concomitant]
     Active Substance: GLUCAGON
  23. BOTULINUM TOXIN NOS [Concomitant]
     Active Substance: BOTULINUM TOXIN NOS
  24. LEVOTHYROXINE SODIUM [Concomitant]
     Active Substance: LEVOTHYROXINE SODIUM
  25. EPINEPHRINE [Concomitant]
     Active Substance: EPINEPHRINE
  26. POTASSIUM CHLORIDE [Concomitant]
     Active Substance: POTASSIUM CHLORIDE
  27. IPRATROPIUM BROMIDE [Concomitant]
     Active Substance: IPRATROPIUM BROMIDE
  28. METHYLPREDNISOLONE [Concomitant]
     Active Substance: METHYLPREDNISOLONE
  29. IOPAMIDOL [Concomitant]
     Active Substance: IOPAMIDOL
  30. PREDNISONE [Concomitant]
     Active Substance: PREDNISONE
  31. METOCLOPRAMIDE [Concomitant]
     Active Substance: METOCLOPRAMIDE
  32. ORPHENADRINE [Concomitant]
     Active Substance: ORPHENADRINE
  33. SOLIFENACIN [SOLIFENACIN SUCCINATE] [Concomitant]

REACTIONS (2)
  - Central nervous system viral infection [Recovered/Resolved]
  - Status epilepticus [Recovered/Resolved]

NARRATIVE: CASE EVENT DATE: 20250430
